FAERS Safety Report 8112687-0 (Version None)
Quarter: 2012Q1

REPORT INFORMATION
  Report Type: 
  Country: None (occurrence: None)
  Receive Date: 20120203
  Receipt Date: 20120124
  Transmission Date: 20120608
  Serious: Yes (Hospitalization, Other)
  Sender: FDA-Public Use
  Company Number: RU-ROCHE-1033439

PATIENT
  Age: 25 Year
  Sex: Female

DRUGS (1)
  1. PEGASYS [Suspect]
     Indication: HEPATITIS B
     Route: 058
     Dates: start: 20100101, end: 20110609

REACTIONS (5)
  - DRUG INEFFECTIVE [None]
  - ASPARTATE AMINOTRANSFERASE INCREASED [None]
  - PYELONEPHRITIS CHRONIC [None]
  - LEUKOPENIA [None]
  - ALANINE AMINOTRANSFERASE INCREASED [None]
